FAERS Safety Report 7543863-3 (Version None)
Quarter: 2011Q2

REPORT INFORMATION
  Report Type: 
  Country: None (occurrence: None)
  Receive Date: 20110613
  Receipt Date: 20110603
  Transmission Date: 20111010
  Serious: Yes (Other)
  Sender: FDA-Public Use
  Company Number: US-US-EMD SERONO, INC.-7063306

PATIENT
  Sex: Female

DRUGS (2)
  1. REBIF [Suspect]
     Indication: PRODUCT USED FOR UNKNOWN INDICATION
     Route: 058
     Dates: start: 20101216
  2. VITAMIN TAB [Concomitant]

REACTIONS (7)
  - WEIGHT INCREASED [None]
  - MALAISE [None]
  - INJECTION SITE ERYTHEMA [None]
  - ABDOMINAL PAIN UPPER [None]
  - PAIN [None]
  - ALOPECIA [None]
  - RED BLOOD CELL COUNT ABNORMAL [None]
